FAERS Safety Report 6107409-9 (Version None)
Quarter: 2009Q1

REPORT INFORMATION
  Report Type: 
  Country: None (occurrence: None)
  Receive Date: 20090227
  Receipt Date: 20080407
  Transmission Date: 20090719
  Serious: Yes (Hospitalization, Other)
  Sender: FDA-Public Use
  Company Number: 169799USA

PATIENT
  Age: 60 Year
  Sex: Female

DRUGS (4)
  1. NITROFURANTOIN [Suspect]
     Indication: PROPHYLAXIS URINARY TRACT INFECTION
     Dates: start: 20070101, end: 20080201
  2. BACLOFEN [Suspect]
     Indication: MUSCLE SPASMS
  3. GABAPENTIN [Suspect]
     Indication: NEURALGIA
  4. INTERFERON BETA 1A [Suspect]
     Indication: MULTIPLE SCLEROSIS
     Dosage: 18.8571 MCG (44 MCG, 3 IN 1 WK), SUBCUTANEOUS
     Route: 058
     Dates: start: 20060314, end: 20080128

REACTIONS (8)
  - BLADDER DISORDER [None]
  - HEPATIC ENZYME INCREASED [None]
  - HEPATITIS [None]
  - JAUNDICE [None]
  - MUSCLE SPASMS [None]
  - NEURALGIA [None]
  - OEDEMA PERIPHERAL [None]
  - SWELLING FACE [None]
